FAERS Safety Report 7335817-7 (Version None)
Quarter: 2011Q1

REPORT INFORMATION
  Report Type: 
  Country: None (occurrence: None)
  Receive Date: 20110302
  Receipt Date: 20110302
  Transmission Date: 20110831
  Serious: Yes (Disabling)
  Sender: FDA-Public Use
  Company Number: None

PATIENT
  Age: 42 Year
  Sex: Male
  Weight: 74.8435 kg

DRUGS (1)
  1. CIPROFLOXACIN HCL [Suspect]
     Indication: PROSTATITIS
     Dosage: 250 MG 2X PER DAY PO
     Route: 048
     Dates: start: 20100222, end: 20100301

REACTIONS (6)
  - IMPAIRED WORK ABILITY [None]
  - BURSITIS [None]
  - TENDONITIS [None]
  - NEUROPATHY PERIPHERAL [None]
  - EXOSTOSIS [None]
  - URINARY TRACT INFECTION [None]
